FAERS Safety Report 15749323 (Version 1)
Quarter: 2018Q4

REPORT INFORMATION
  Report Type: Spontaneous
  Country: US (occurrence: US)
  Receive Date: 20181219
  Receipt Date: 20181219
  Transmission Date: 20190205
  Serious: No
  Sender: FDA-Public Use
  Company Number: None

PATIENT
  Age: 60 Year
  Weight: 58 kg

DRUGS (2)
  1. ROCURONIUM BROMIDE INJECTION [Suspect]
     Active Substance: ROCURONIUM BROMIDE
     Route: 042
     Dates: start: 20181205
  2. ROCURONIUM BROMIDE INJECTION [Suspect]
     Active Substance: ROCURONIUM BROMIDE
     Dosage: ?          OTHER FREQUENCY:Q 45 MINUTES ;?
     Route: 042
     Dates: start: 20181205

REACTIONS (3)
  - Airway complication of anaesthesia [None]
  - Product storage error [None]
  - Drug ineffective [None]

NARRATIVE: CASE EVENT DATE: 20181205
